FAERS Safety Report 6561054-X (Version None)
Quarter: 2010Q1

REPORT INFORMATION
  Report Type: 
  Country: None (occurrence: None)
  Receive Date: 20100130
  Receipt Date: 20091007
  Transmission Date: 20100710
  Serious: No
  Sender: FDA-Public Use
  Company Number: US-ABBOTT-09P-163-0601547-00

PATIENT
  Sex: Male
  Weight: 79.45 kg

DRUGS (7)
  1. HUMIRA [Suspect]
     Indication: PSORIATIC ARTHROPATHY
     Dosage: HAS USED PEN AND SYRINGE INTERCHANGABLY
     Dates: start: 20090706
  2. HUMIRA [Suspect]
     Indication: PSORIATIC ARTHROPATHY
     Dates: start: 20090706
  3. AMLODIPINE [Concomitant]
     Indication: HYPERTENSION
  4. LIPITOR [Concomitant]
     Indication: HYPERCHOLESTEROLAEMIA
  5. ZETIA [Concomitant]
     Indication: HYPERCHOLESTEROLAEMIA
  6. VALIUM [Concomitant]
     Indication: INSOMNIA
  7. TEMAZEPAM [Concomitant]
     Indication: INSOMNIA

REACTIONS (1)
  - BREATH ODOUR [None]
